FAERS Safety Report 6267482-4 (Version None)
Quarter: 2009Q3

REPORT INFORMATION
  Report Type: 
  Country: None (occurrence: None)
  Receive Date: 20090714
  Receipt Date: 20090707
  Transmission Date: 20100115
  Serious: Yes (Death)
  Sender: FDA-Public Use
  Company Number: FR-TEVA-190532ISR

PATIENT
  Sex: Female

DRUGS (3)
  1. ETOPOSIDE [Suspect]
     Indication: OVARIAN CANCER
     Dosage: 20MG/ML 50 ML
     Route: 042
     Dates: start: 20090313, end: 20090315
  2. IFOSFAMIDE [Suspect]
     Indication: OVARIAN CANCER
     Route: 042
     Dates: start: 20090313, end: 20090314
  3. CISPLATIN [Suspect]
     Indication: OVARIAN CANCER
     Route: 042
     Dates: start: 20090313, end: 20090315

REACTIONS (5)
  - BLOOD BILIRUBIN INCREASED [None]
  - ENCEPHALOPATHY [None]
  - HEPATITIS ACUTE [None]
  - MULTI-ORGAN FAILURE [None]
  - TRANSAMINASES INCREASED [None]
